FAERS Safety Report 10559231 (Version 3)
Quarter: 2015Q1

REPORT INFORMATION
  Report Type: Spontaneous
  Country: US (occurrence: US)
  Receive Date: 20141103
  Receipt Date: 20150214
  Transmission Date: 20150720
  Serious: Yes (Hospitalization)
  Sender: FDA-Public Use
  Company Number: US-BIOGENIDEC-2014BI111925

PATIENT
  Sex: Female

DRUGS (11)
  1. CHOLECALCIFEROL [Concomitant]
     Active Substance: CHOLECALCIFEROL
     Route: 048
  2. CALCIUM [Concomitant]
     Active Substance: CALCIUM
     Route: 048
  3. BACLOFEN. [Concomitant]
     Active Substance: BACLOFEN
     Route: 048
  4. AVONEX [Suspect]
     Active Substance: INTERFERON BETA-1A
     Indication: MULTIPLE SCLEROSIS
     Route: 030
     Dates: start: 201301
  5. OMEPRAZOLE. [Concomitant]
     Active Substance: OMEPRAZOLE
     Route: 048
  6. PROPYLTHIOURACIL. [Concomitant]
     Active Substance: PROPYLTHIOURACIL
     Route: 048
  7. METOPROLOL XL [Concomitant]
     Active Substance: METOPROLOL
     Route: 048
  8. AVONEX [Suspect]
     Active Substance: INTERFERON BETA-1A
     Indication: MULTIPLE SCLEROSIS
     Route: 030
  9. AVONEX [Suspect]
     Active Substance: INTERFERON BETA-1A
     Indication: MULTIPLE SCLEROSIS
     Route: 030
     Dates: start: 19980601, end: 201211
  10. HYDROXYCHLOROQUINE [Concomitant]
     Active Substance: HYDROXYCHLOROQUINE
     Route: 048
  11. TRIAMTERENE-HYDROCHLOROTHIAZIDE 37.5-25 [Concomitant]
     Route: 048

REACTIONS (6)
  - Abasia [Recovered/Resolved with Sequelae]
  - Enuresis [Recovered/Resolved with Sequelae]
  - Gait disturbance [Not Recovered/Not Resolved]
  - Multiple sclerosis [Unknown]
  - Fall [Recovered/Resolved]
  - Head injury [Recovered/Resolved]

NARRATIVE: CASE EVENT DATE: 2012
